FAERS Safety Report 7652107-3 (Version None)
Quarter: 2011Q3

REPORT INFORMATION
  Report Type: 
  Country: None (occurrence: None)
  Receive Date: 20110803
  Receipt Date: 20110726
  Transmission Date: 20111222
  Serious: Yes (Life-Threatening, Hospitalization)
  Sender: FDA-Public Use
  Company Number: US-CELGENEUS-163-20785-11023216

PATIENT
  Sex: Female

DRUGS (37)
  1. MIRALAX [Concomitant]
     Indication: CONSTIPATION
     Dosage: 17 GRAM
     Route: 048
  2. ZOFRAN [Concomitant]
     Indication: NAUSEA
     Dosage: 4 MILLIGRAM
     Route: 048
  3. PREDNISONE [Concomitant]
     Indication: PROPHYLAXIS AGAINST TRANSPLANT REJECTION
     Dosage: 15 MILLIGRAM
     Route: 048
  4. ATIVAN [Concomitant]
     Indication: ANXIETY
     Dosage: .25 MILLIGRAM
     Route: 048
  5. SENNA [Concomitant]
     Dosage: 2 CAPSULE
     Route: 048
  6. HYDRALAZINE HCL [Concomitant]
     Dosage: 2.5 MILLIGRAM
     Route: 048
  7. XOPENEX [Concomitant]
     Dosage: .63 MILLIGRAM
     Route: 048
  8. AQUAPHOR [Concomitant]
     Indication: DRY SKIN
     Route: 061
  9. TYLENOL-500 [Concomitant]
     Dosage: 650 MILLIGRAM
     Route: 048
  10. LACROLUBE [Concomitant]
     Dosage: 10 MILLILITER
     Route: 065
  11. THALOMID [Suspect]
     Indication: CASTLEMAN'S DISEASE
     Dosage: 350 MILLIGRAM
     Route: 048
     Dates: start: 20100801
  12. HYDROCHLOROTHIAZIDE [Concomitant]
     Indication: DIURETIC THERAPY
     Dosage: 25 MILLIGRAM
     Route: 048
  13. FLUCONAZOLE [Concomitant]
     Indication: INFECTION PROPHYLAXIS
     Dosage: 400 MILLIGRAM
     Route: 048
  14. ACYCLOVIR [Concomitant]
     Indication: INFECTION PROPHYLAXIS
     Dosage: 200 MILLIGRAM
     Route: 048
  15. ATIVAN [Concomitant]
     Dosage: .5 MILLIGRAM
     Route: 048
  16. CELEXA [Concomitant]
     Dosage: 10 MILLIGRAM
     Route: 048
  17. MAGIC MOUTHWASH [Concomitant]
     Route: 047
  18. ALBUTEROL SULFATE AUTOHALER [Concomitant]
     Dosage: 2 PUFFS
     Route: 055
  19. PRILOSEC [Concomitant]
     Indication: PROPHYLAXIS AGAINST GASTROINTESTINAL ULCER
     Dosage: 20 MILLIGRAM
     Route: 048
     Dates: start: 20090801
  20. VALACICLOVIR [Concomitant]
     Dosage: 500 MILLIGRAM
     Route: 048
  21. CELEBREX [Concomitant]
     Indication: CASTLEMAN'S DISEASE
     Dosage: 200 MILLIGRAM
     Route: 048
     Dates: start: 20090901
  22. POTASSIUM CHLORIDE [Concomitant]
     Dosage: 20 MILLIEQUIVALENTS
     Route: 048
  23. TYLENOL-500 [Concomitant]
     Indication: PAIN
  24. ARTIFICIAL TEARS [Concomitant]
     Dosage: 1-2 DROP
     Route: 065
  25. ATROVENT [Concomitant]
     Dosage: .5 MILLIGRAM
     Route: 048
  26. CLONAZEPAM [Concomitant]
     Dosage: .5 MILLIGRAM
     Route: 048
  27. THALOMID [Suspect]
     Dosage: 100-300MG
     Route: 048
     Dates: start: 20100901
  28. COLACE [Concomitant]
     Dosage: 100 MILLIGRAM
     Route: 048
  29. OXYCODONE HCL [Concomitant]
     Indication: PAIN
     Dosage: 5 MILLIGRAM
     Route: 048
  30. PREDNISONE [Concomitant]
     Dosage: 19 MILLIGRAM
     Route: 048
  31. ALBUTEROL SULFATE AUTOHALER [Concomitant]
     Dosage: 2.5 MILLIGRAM
     Route: 055
  32. DEPO-PROVERA [Concomitant]
     Dosage: 150 MILLIGRAM
     Route: 030
     Dates: start: 20090801
  33. BACTRIM DS [Concomitant]
     Indication: INFECTION PROPHYLAXIS
     Dosage: 800MG/160MG
     Route: 048
     Dates: start: 20090801
  34. AMLODIPINE BESYLATE [Concomitant]
     Indication: BLOOD PRESSURE
     Dosage: 5 MILLIGRAM
     Route: 048
  35. ZOFRAN [Concomitant]
     Indication: VOMITING
     Dosage: 8 MILLIGRAM
     Route: 048
  36. AZITHROMYCIN [Concomitant]
     Indication: INFECTION PROPHYLAXIS
     Dosage: 500 MILLIGRAM
     Route: 048
  37. PULMICORT [Concomitant]
     Dosage: .5 MILLIGRAM
     Route: 048

REACTIONS (3)
  - ABDOMINAL MASS [None]
  - OBLITERATIVE BRONCHIOLITIS [None]
  - RESPIRATORY DISTRESS [None]
